FAERS Safety Report 13948980 (Version 1)
Quarter: 2017Q3

REPORT INFORMATION
  Report Type: Spontaneous
  Country: US (occurrence: US)
  Receive Date: 20170908
  Receipt Date: 20170908
  Transmission Date: 20171128
  Serious: Yes (Hospitalization)
  Sender: FDA-Public Use
  Company Number: US-ASTRAZENECA-2016SE40167

PATIENT
  Age: 41 Year
  Sex: Female

DRUGS (1)
  1. ZOMIG [Suspect]
     Active Substance: ZOLMITRIPTAN
     Indication: MIGRAINE
     Dosage: 5.0MG UNKNOWN
     Route: 048
     Dates: start: 1999

REACTIONS (10)
  - Cataplexy [Unknown]
  - Somnambulism [Unknown]
  - Fibrin D dimer increased [Unknown]
  - Lyme disease [Unknown]
  - Narcolepsy [Unknown]
  - Labile hypertension [Unknown]
  - Barrett^s oesophagus [Unknown]
  - Irritable bowel syndrome [Unknown]
  - Hiatus hernia [Unknown]
  - Gastrooesophageal reflux disease [Unknown]

NARRATIVE: CASE EVENT DATE: 2012
